FAERS Safety Report 8920278 (Version 2)
Quarter: 2012Q4

REPORT INFORMATION
  Report Type: 
  Country: US (occurrence: US)
  Receive Date: 20121121
  Receipt Date: 20121130
  Transmission Date: 20130627
  Serious: Yes (Death, Hospitalization, Other)
  Sender: FDA-Public Use
  Company Number: US-B.I. PHARMACEUTICALS,INC./RIDGEFIELD-2012-BI-00559BP

PATIENT
  Age: 82 Year
  Sex: Male

DRUGS (3)
  1. PRADAXA [Suspect]
     Indication: ATRIAL FIBRILLATION
     Dosage: 150 mg
     Route: 048
     Dates: start: 201103, end: 2012
  2. PRADAXA [Suspect]
     Dosage: 300 mg
     Route: 048
     Dates: start: 2012
  3. VICODIN [Concomitant]
     Indication: LUMBAR RADICULOPATHY
     Dates: start: 20110825

REACTIONS (8)
  - Death [Fatal]
  - Cerebrovascular accident [Unknown]
  - Aphasia [Unknown]
  - Asthenia [Unknown]
  - Blood pressure increased [Recovered/Resolved]
  - Decubitus ulcer [Unknown]
  - Constipation [Unknown]
  - Pain in extremity [Unknown]
